FAERS Safety Report 7163088-3 (Version None)
Quarter: 2010Q4

REPORT INFORMATION
  Report Type: 
  Country: None (occurrence: None)
  Receive Date: 20101215
  Receipt Date: 20100222
  Transmission Date: 20110411
  Serious: Yes (Other)
  Sender: FDA-Public Use
  Company Number: AT-PFIZER INC-2010023126

PATIENT
  Age: 69 Year
  Sex: Male

DRUGS (13)
  1. LYRICA [Suspect]
     Dosage: 75 MG, 1X/DAY
     Route: 048
     Dates: start: 20100101
  2. LYRICA [Suspect]
     Dosage: 75 MG, 3X/DAY
     Route: 048
     Dates: start: 20100101
  3. NEURONTIN [Concomitant]
     Dosage: UNK
  4. ACECOMB [Concomitant]
     Dosage: UNK
  5. ACEMIN [Concomitant]
     Dosage: 10 MG, UNK
  6. DOXAZOSIN [Concomitant]
     Dosage: 4 MG, UNK
  7. GLADEM [Concomitant]
     Dosage: UNK
  8. MAGNOSOLV ^ASTA MEDICA^ [Concomitant]
     Dosage: UNK
  9. NORVASC [Concomitant]
     Dosage: UNK
  10. SIMVASTATIN [Concomitant]
     Dosage: UNK
  11. ASPIRIN [Concomitant]
     Dosage: UNK
  12. INSULIN [Concomitant]
     Dosage: UNK
  13. VOLTAREN [Concomitant]
     Dosage: UNK

REACTIONS (3)
  - MUSCLE SPASTICITY [None]
  - PAIN [None]
  - TINNITUS [None]
